FAERS Safety Report 8827322 (Version 1)
Quarter: 2012Q4

REPORT INFORMATION
  Report Type: 
  Country: US (occurrence: US)
  Receive Date: 20121005
  Receipt Date: 20121005
  Transmission Date: 20130627
  Serious: Yes (Other)
  Sender: FDA-Public Use
  Company Number: US-ASTRAZENECA-2012SE08896

PATIENT
  Age: 82 Year
  Sex: Female
  Weight: 78.5 kg

DRUGS (1)
  1. NEXIUM [Suspect]
     Route: 048

REACTIONS (9)
  - Cerebrovascular accident [Unknown]
  - Post procedural haemorrhage [Unknown]
  - Hyperkeratosis [Unknown]
  - Wound haemorrhage [Unknown]
  - Pancreatic cyst [Not Recovered/Not Resolved]
  - Limb injury [Unknown]
  - Skin ulcer [Unknown]
  - Therapeutic response unexpected [Unknown]
  - Intentional drug misuse [Unknown]
